FAERS Safety Report 6278499-8 (Version None)
Quarter: 2009Q3

REPORT INFORMATION
  Report Type: 
  Country: None (occurrence: None)
  Receive Date: 20090721
  Receipt Date: 20090714
  Transmission Date: 20100115
  Serious: Yes (Disabling)
  Sender: FDA-Public Use
  Company Number: VISP-NO-0907S-0330

PATIENT
  Age: 64 Year
  Sex: Male

DRUGS (4)
  1. VISIPAQUE [Suspect]
     Indication: DRUG USE FOR UNKNOWN INDICATION
     Dosage: 16 ML, SINGLE DOSE, I.A.; SINGLE DOSE
     Dates: start: 20050601, end: 20050601
  2. VISIPAQUE [Suspect]
     Indication: RENAL DISORDER
     Dosage: 16 ML, SINGLE DOSE, I.A.; SINGLE DOSE
     Dates: start: 20050601, end: 20050601
  3. VISIPAQUE [Suspect]
     Indication: DRUG USE FOR UNKNOWN INDICATION
     Dosage: 16 ML, SINGLE DOSE, I.A.; SINGLE DOSE
     Dates: start: 20050801, end: 20050801
  4. VISIPAQUE [Suspect]
     Indication: RENAL DISORDER
     Dosage: 16 ML, SINGLE DOSE, I.A.; SINGLE DOSE
     Dates: start: 20050801, end: 20050801

REACTIONS (4)
  - CONDITION AGGRAVATED [None]
  - DIALYSIS [None]
  - PRODUCT QUALITY ISSUE [None]
  - RENAL IMPAIRMENT [None]
